FAERS Safety Report 10019185 (Version 1)
Quarter: 2014Q1

REPORT INFORMATION
  Report Type: Spontaneous
  Country: GB (occurrence: GB)
  Receive Date: 20140318
  Receipt Date: 20140318
  Transmission Date: 20141002
  Serious: Yes (Disabling)
  Sender: FDA-Public Use
  Company Number: GB-B.I. PHARMACEUTICALS,INC./RIDGEFIELD-2014-BI-10753UK

PATIENT
  Age: 69 Year
  Sex: Male

DRUGS (3)
  1. PRADAXA [Suspect]
     Indication: ATRIAL FIBRILLATION
     Dosage: 300 MG
     Route: 048
     Dates: start: 20140207, end: 20140210
  2. ASPIRIN [Concomitant]
     Route: 048
  3. KETOCONAZOLE [Concomitant]
     Dosage: 0.2857 ANZ
     Route: 061

REACTIONS (1)
  - Migraine [Not Recovered/Not Resolved]
